FAERS Safety Report 20292061 (Version 1)
Quarter: 2022Q1

REPORT INFORMATION
  Report Type: Spontaneous
  Country: US (occurrence: US)
  Receive Date: 20220104
  Receipt Date: 20220104
  Transmission Date: 20220423
  Serious: No
  Sender: FDA-Public Use
  Company Number: US-PFIZER INC-202100998928

PATIENT
  Age: 78 Year
  Sex: Male
  Weight: 97.52 kg

DRUGS (1)
  1. CAVERJECT [Suspect]
     Active Substance: ALPROSTADIL
     Indication: Erectile dysfunction
     Dosage: 1.25 UG, AS NEEDED (DAILY  PRN)
     Route: 017

REACTIONS (2)
  - Hyperlipidaemia [Unknown]
  - Off label use [Unknown]
